FAERS Safety Report 10340911 (Version 1)
Quarter: 2014Q3

REPORT INFORMATION
  Report Type: Spontaneous
  Country: US (occurrence: US)
  Receive Date: 20140724
  Receipt Date: 20140724
  Transmission Date: 20150326
  Serious: No
  Sender: FDA-Public Use
  Company Number: US-MYLANLABS-2013S1015340

PATIENT
  Age: 45 Year
  Sex: Female
  Weight: 51.71 kg

DRUGS (1)
  1. LEVOTHYROXINE SODIUM. [Suspect]
     Active Substance: LEVOTHYROXINE SODIUM
     Dates: start: 2013

REACTIONS (5)
  - Urticaria [Unknown]
  - Hyperthyroidism [Unknown]
  - Agitation [Unknown]
  - Reaction to drug excipients [Unknown]
  - Feeling abnormal [Unknown]

NARRATIVE: CASE EVENT DATE: 2013
